FAERS Safety Report 24770143 (Version 2)
Quarter: 2025Q1

REPORT INFORMATION
  Report Type: Spontaneous
  Country: FR (occurrence: FR)
  Receive Date: 20241224
  Receipt Date: 20250131
  Transmission Date: 20250409
  Serious: Yes (Other)
  Sender: AUROBINDO
  Company Number: FR-AFSSAPS-AVNY2024000578

PATIENT
  Age: 33 Year
  Sex: Female

DRUGS (5)
  1. ALPRAZOLAM [Suspect]
     Active Substance: ALPRAZOLAM
     Indication: Product used for unknown indication
     Route: 048
     Dates: start: 2020
  2. TRAMADOL [Suspect]
     Active Substance: TRAMADOL
     Indication: Product used for unknown indication
     Route: 048
     Dates: start: 2020
  3. ZOLPIDEM [Suspect]
     Active Substance: ZOLPIDEM TARTRATE
     Indication: Product used for unknown indication
     Route: 048
     Dates: start: 2020
  4. ZOPICLONE [Suspect]
     Active Substance: ZOPICLONE
     Indication: Product used for unknown indication
     Route: 048
     Dates: start: 2020
  5. IXPRIM [Suspect]
     Active Substance: ACETAMINOPHEN\TRAMADOL HYDROCHLORIDE
     Indication: Product used for unknown indication
     Route: 048
     Dates: start: 2020

REACTIONS (4)
  - Drug use disorder [Not Recovered/Not Resolved]
  - Sleep disorder [Not Recovered/Not Resolved]
  - Overdose [Not Recovered/Not Resolved]
  - Pharmaceutical nomadism [Unknown]

NARRATIVE: CASE EVENT DATE: 20200101
